FAERS Safety Report 10013806 (Version 3)
Quarter: 2014Q1

REPORT INFORMATION
  Report Type: Spontaneous
  Country: US (occurrence: US)
  Receive Date: 20140316
  Receipt Date: 20140328
  Transmission Date: 20141002
  Serious: Yes (Hospitalization, Other)
  Sender: FDA-Public Use
  Company Number: US-US-EMD SERONO, INC.-230272J09USA

PATIENT
  Age: 54 Year
  Sex: Female
  Weight: 61 kg

DRUGS (9)
  1. REBIF [Suspect]
     Indication: MULTIPLE SCLEROSIS
     Route: 058
     Dates: start: 20090720, end: 2011
  2. ZOLOFT [Concomitant]
     Indication: DEPRESSION
     Route: 065
  3. ADDERALL [Concomitant]
     Indication: FATIGUE
     Route: 065
  4. KLONOPIN [Concomitant]
     Indication: PAIN
     Route: 065
  5. NIASPAN [Concomitant]
     Indication: BLOOD TRIGLYCERIDES INCREASED
     Route: 065
  6. ZOCOR [Concomitant]
     Indication: BLOOD CHOLESTEROL INCREASED
     Route: 065
  7. LYRICA [Concomitant]
     Indication: NEURALGIA
     Route: 065
  8. TYLENOL NUMBER 3 [Concomitant]
     Indication: PAIN
     Route: 065
  9. LIDODERM PATCH [Concomitant]
     Indication: PAIN
     Route: 065

REACTIONS (3)
  - Myocardial infarction [Recovered/Resolved]
  - Coronary artery stenosis [Recovering/Resolving]
  - Loss of consciousness [Recovering/Resolving]
